FAERS Safety Report 15490752 (Version 1)
Quarter: 2018Q4

REPORT INFORMATION
  Report Type: Report from Study
  Country: DE (occurrence: DE)
  Receive Date: 20181011
  Receipt Date: 20181011
  Transmission Date: 20190205
  Serious: Yes (Hospitalization)
  Sender: FDA-Public Use
  Company Number: DE-AMGEN-DEUSL2018133947

PATIENT
  Age: 64 Year
  Sex: Male
  Weight: 76 kg

DRUGS (3)
  1. PANITUMUMAB [Suspect]
     Active Substance: PANITUMUMAB
     Indication: COLON CANCER
     Dosage: 6 MG/KG, UNK
     Route: 042
     Dates: start: 20180702, end: 20180827
  2. PANITUMUMAB [Suspect]
     Active Substance: PANITUMUMAB
     Dosage: 6 MG/KG, UNK
     Route: 042
     Dates: start: 20181001, end: 20181001
  3. IRINOTECAN [Suspect]
     Active Substance: IRINOTECAN
     Indication: COLON CANCER
     Dosage: 180 MG/M2, Q2WK
     Route: 065
     Dates: start: 20180702, end: 20181001

REACTIONS (2)
  - Diarrhoea [Recovered/Resolved]
  - Hyponatraemia [Unknown]

NARRATIVE: CASE EVENT DATE: 20180901
